FAERS Safety Report 18033015 (Version 1)
Quarter: 2020Q3

REPORT INFORMATION
  Report Type: Spontaneous
  Country: US (occurrence: US)
  Receive Date: 20200716
  Receipt Date: 20200716
  Transmission Date: 20201103
  Serious: No
  Sender: FDA-Public Use
  Company Number: US-SA-2020SA181337

PATIENT

DRUGS (2)
  1. LANTUS [Suspect]
     Active Substance: INSULIN GLARGINE
     Dosage: BUTTON STOPPED AT 12 UNITS
  2. LANTUS [Suspect]
     Active Substance: INSULIN GLARGINE
     Dosage: 25 IU

REACTIONS (1)
  - Wrong technique in device usage process [Unknown]
